APPROVED DRUG PRODUCT: BUTALBITAL, ACETAMINOPHEN AND CAFFEINE
Active Ingredient: ACETAMINOPHEN; BUTALBITAL; CAFFEINE
Strength: 325MG;50MG;40MG
Dosage Form/Route: TABLET;ORAL
Application: A087629 | Product #001
Applicant: GILBERT LABORATORIES
Approved: Nov 13, 1984 | RLD: No | RS: No | Type: DISCN